FAERS Safety Report 5928012-7 (Version None)
Quarter: 2008Q4

REPORT INFORMATION
  Report Type: 
  Country: None (occurrence: None)
  Receive Date: 20081022
  Receipt Date: 20081022
  Transmission Date: 20090506
  Serious: Yes (Hospitalization)
  Sender: FDA-Public Use
  Company Number: None

PATIENT
  Sex: Male
  Weight: 77 kg

DRUGS (3)
  1. FLUOROURACIL [Suspect]
     Dosage: 5310 MG
     Dates: end: 20081009
  2. LEUCOVORIN CALCIUM [Suspect]
     Dosage: 760 MG
     Dates: end: 20081007
  3. ELOXATIN [Suspect]
     Dosage: 160 MG
     Dates: end: 20081007

REACTIONS (4)
  - DYSPHAGIA [None]
  - HYPERGLYCAEMIA [None]
  - HYPOPHAGIA [None]
  - ORAL PAIN [None]
